FAERS Safety Report 20403310 (Version 1)
Quarter: 2022Q1

REPORT INFORMATION
  Report Type: Spontaneous
  Country: GB (occurrence: GB)
  Receive Date: 20220131
  Receipt Date: 20220131
  Transmission Date: 20220423
  Serious: Yes (Other)
  Sender: FDA-Public Use
  Company Number: GB-AMGEN-GBRSP2022012320

PATIENT
  Age: 55 Year
  Sex: Female

DRUGS (10)
  1. XGEVA [Suspect]
     Active Substance: DENOSUMAB
     Indication: Breast cancer
     Dosage: 120 MILLIGRAM
     Route: 058
     Dates: start: 2019
  2. CALCIUM CARBONATE\CHOLECALCIFEROL [Concomitant]
     Active Substance: CALCIUM CARBONATE\CHOLECALCIFEROL
  3. DEXAMETHASONE [Concomitant]
     Active Substance: DEXAMETHASONE
  4. GEMCITABINE [Concomitant]
     Active Substance: GEMCITABINE
  5. DEXTROSE [Concomitant]
     Active Substance: DEXTROSE
  6. HEPARIN [Concomitant]
     Active Substance: HEPARIN SODIUM
  7. MAGNASPARTATE [Concomitant]
  8. PALONOSETRON [Concomitant]
     Active Substance: PALONOSETRON
  9. POTASSIUM BICARBONATE\POTASSIUM CHLORIDE [Concomitant]
     Active Substance: POTASSIUM BICARBONATE\POTASSIUM CHLORIDE
  10. SODIUM CHLORIDE [Concomitant]
     Active Substance: SODIUM CHLORIDE

REACTIONS (6)
  - Syncope [Unknown]
  - Depressed mood [Unknown]
  - Dizziness [Unknown]
  - Fatigue [Unknown]
  - Back pain [Unknown]
  - Dyspnoea [Unknown]
